FAERS Safety Report 4698539-7 (Version None)
Quarter: 2005Q2

REPORT INFORMATION
  Report Type: 
  Country: None (occurrence: None)
  Receive Date: 20050622
  Receipt Date: 20050609
  Transmission Date: 20051028
  Serious: Yes (Hospitalization, Other)
  Sender: FDA-Public Use
  Company Number: 2005086608

PATIENT
  Sex: Female
  Weight: 36 kg

DRUGS (9)
  1. DILANTIN [Suspect]
     Indication: CONVULSION
     Dosage: 250 MG (125 MG, 2 IN 1 D), GASTROSTOMY TUBE
  2. PHENOBARBITAL [Concomitant]
  3. BACLOFEN [Concomitant]
  4. AMITRIPTYLINE HCL [Concomitant]
  5. SYNTHROID [Concomitant]
  6. SEROQUEL [Concomitant]
  7. BECONASE AQUEOUS (BECLOMETASONE DIPROPIONATE) [Concomitant]
  8. LACTULOSE [Concomitant]
  9. FIBERALL (PSYLLIUM HYDROPHILIC MUCILLOID) [Concomitant]

REACTIONS (4)
  - ANTICONVULSANT DRUG LEVEL INCREASED [None]
  - DIARRHOEA [None]
  - INTESTINAL OBSTRUCTION [None]
  - PNEUMONIA [None]
